FAERS Safety Report 8182160-2 (Version None)
Quarter: 2012Q1

REPORT INFORMATION
  Report Type: 
  Country: None (occurrence: None)
  Receive Date: 20120302
  Receipt Date: 20120220
  Transmission Date: 20120608
  Serious: Yes (Other)
  Sender: FDA-Public Use
  Company Number: US-ELI_LILLY_AND_COMPANY-US201202006021

PATIENT
  Age: 26 Year
  Sex: Male

DRUGS (4)
  1. BUTRANS [Concomitant]
  2. NEURONTIN [Concomitant]
  3. CYMBALTA [Suspect]
     Dosage: UNK, UNKNOWN
  4. NAPROXEN [Concomitant]

REACTIONS (3)
  - HYPERSENSITIVITY [None]
  - URTICARIA [None]
  - THROAT TIGHTNESS [None]
